FAERS Safety Report 19513654 (Version 2)
Quarter: 2022Q2

REPORT INFORMATION
  Report Type: Spontaneous
  Country: US (occurrence: US)
  Receive Date: 20210709
  Receipt Date: 20220531
  Transmission Date: 20220721
  Serious: Yes (Hospitalization, Other)
  Sender: FDA-Public Use
  Company Number: US-GILEAD-2021-0539816

PATIENT
  Age: 31 Year
  Weight: 96.961 kg

DRUGS (9)
  1. TRUVADA [Suspect]
     Active Substance: EMTRICITABINE\TENOFOVIR DISOPROXIL FUMARATE
     Indication: Prophylaxis against HIV infection
     Dosage: 200-300 MG, QD
     Route: 048
     Dates: start: 20070101, end: 20201231
  2. TRUVADA [Suspect]
     Active Substance: EMTRICITABINE\TENOFOVIR DISOPROXIL FUMARATE
     Dosage: 200MG - 300 MG, QD
     Route: 048
     Dates: start: 20170303, end: 20170918
  3. TRUVADA [Suspect]
     Active Substance: EMTRICITABINE\TENOFOVIR DISOPROXIL FUMARATE
     Dosage: 200MG - 300 MG, QD
     Route: 048
     Dates: start: 20170918, end: 20180215
  4. DESCOVY [Concomitant]
     Active Substance: EMTRICITABINE\TENOFOVIR ALAFENAMIDE FUMARATE
  5. DOXYCYCLINE HYCLATE [Concomitant]
     Active Substance: DOXYCYCLINE HYCLATE
  6. DOXYCYCLINE [Concomitant]
     Active Substance: DOXYCYCLINE
  7. VENTOLIN HFA [Concomitant]
     Active Substance: ALBUTEROL SULFATE
  8. METRONIDAZOLE [Concomitant]
     Active Substance: METRONIDAZOLE
  9. ATROPINE\DIPHENOXYLATE [Concomitant]
     Active Substance: ATROPINE\DIPHENOXYLATE

REACTIONS (22)
  - Osteoporosis [Unknown]
  - Renal impairment [Unknown]
  - Major depression [Unknown]
  - Cyst [Unknown]
  - Post-traumatic stress disorder [Unknown]
  - Suicide attempt [Unknown]
  - Muscle spasms [Unknown]
  - Pain in extremity [Unknown]
  - Insomnia [Unknown]
  - Liver disorder [Unknown]
  - Body mass index increased [Unknown]
  - Abdominal pain upper [Unknown]
  - Fatigue [Unknown]
  - Hyperphagia [Unknown]
  - Anhedonia [Unknown]
  - Hypersomnia [Unknown]
  - Merycism [Unknown]
  - Nasopharyngitis [Unknown]
  - Pyrexia [Recovered/Resolved]
  - Bronchitis [Unknown]
  - Anxiety disorder [Unknown]
  - Asthenia [Unknown]

NARRATIVE: CASE EVENT DATE: 20170725
